FAERS Safety Report 9226261 (Version 2)
Quarter: 2013Q2

REPORT INFORMATION
  Report Type: Spontaneous
  Country: US (occurrence: US)
  Receive Date: 20130411
  Receipt Date: 20130419
  Transmission Date: 20140414
  Serious: No
  Sender: FDA-Public Use
  Company Number: US-PFIZER INC-2013109418

PATIENT
  Age: 50 Year
  Sex: Female
  Weight: 49.89 kg

DRUGS (8)
  1. LEVOTHYROXINE SODIUM [Suspect]
     Indication: BASEDOW^S DISEASE
     Dosage: UNK
     Dates: start: 2001, end: 2002
  2. LEVOXYL [Suspect]
     Indication: BASEDOW^S DISEASE
     Dosage: 100 UG, UNK
     Dates: start: 2002
  3. LEVOXYL [Suspect]
     Dosage: 88 UG, UNK
  4. LEVOXYL [Suspect]
     Dosage: 75 UG, UNK
  5. LEVOXYL [Suspect]
     Dosage: 50 UG, UNK
  6. LEVOXYL [Suspect]
     Dosage: UNK
  7. LEVOXYL [Suspect]
     Dosage: 75 MG, UNK
  8. SYNTHROID [Suspect]
     Indication: BASEDOW^S DISEASE
     Dosage: UNK
     Dates: start: 2001, end: 2002

REACTIONS (6)
  - Drug effect incomplete [Unknown]
  - Tremor [Unknown]
  - Nausea [Unknown]
  - Dizziness [Unknown]
  - Headache [Unknown]
  - Malaise [Unknown]
